FAERS Safety Report 9070081 (Version 1)
Quarter: 2013Q1

REPORT INFORMATION
  Report Type: Report from Study
  Country: NL (occurrence: NL)
  Receive Date: 20130129
  Receipt Date: 20130129
  Transmission Date: 20140127
  Serious: Yes (Hospitalization)
  Sender: FDA-Public Use
  Company Number: NL-BAXTER-2013BAX003248

PATIENT
  Age: 35 None
  Sex: Male
  Weight: 76 kg

DRUGS (15)
  1. ENDOXAN I.V., POEDER VOOR OPLOSSING VOOR INJECTIE 200, 500, 1000 MG [Suspect]
     Indication: DIFFUSE LARGE B-CELL LYMPHOMA
     Route: 042
     Dates: start: 20100924
  2. ENDOXAN I.V., POEDER VOOR OPLOSSING VOOR INJECTIE 200, 500, 1000 MG [Suspect]
     Route: 042
     Dates: start: 20101202
  3. RITUXIMAB [Suspect]
     Indication: DIFFUSE LARGE B-CELL LYMPHOMA
     Route: 042
     Dates: start: 20100924
  4. RITUXIMAB [Suspect]
     Route: 042
     Dates: start: 20101202
  5. PREDNISONE [Suspect]
     Indication: DIFFUSE LARGE B-CELL LYMPHOMA
     Route: 048
     Dates: start: 20100924
  6. PREDNISONE [Suspect]
     Route: 048
     Dates: start: 20101202
  7. DOXORUBICIN [Suspect]
     Indication: DIFFUSE LARGE B-CELL LYMPHOMA
     Route: 042
     Dates: start: 20100924
  8. DOXORUBICIN [Suspect]
     Route: 042
     Dates: start: 20101202
  9. VINBLASTINE [Suspect]
     Indication: DIFFUSE LARGE B-CELL LYMPHOMA
     Route: 042
     Dates: start: 20101202
  10. VINBLASTINE [Suspect]
     Route: 042
     Dates: start: 20110120
  11. G-CSF [Suspect]
     Indication: DIFFUSE LARGE B-CELL LYMPHOMA
     Route: 058
     Dates: start: 20100925
  12. G-CSF [Suspect]
     Route: 058
     Dates: start: 20101202
  13. MORPHINE [Concomitant]
     Indication: ABDOMINAL PAIN UPPER
     Route: 048
     Dates: start: 20101001
  14. OXYCODONE [Concomitant]
     Indication: ABDOMINAL PAIN UPPER
     Route: 048
     Dates: start: 20101001
  15. PANTOPRAZOL [Concomitant]
     Indication: ABDOMINAL PAIN UPPER
     Route: 054
     Dates: start: 20100909

REACTIONS (1)
  - Tonsillitis [Recovered/Resolved]
